FAERS Safety Report 21410674 (Version 2)
Quarter: 2022Q4

REPORT INFORMATION
  Report Type: Report from Study
  Country: FR (occurrence: FR)
  Receive Date: 20221005
  Receipt Date: 20221018
  Transmission Date: 20230113
  Serious: Yes (Hospitalization)
  Sender: FDA-Public Use
  Company Number: FR-ABBVIE-4131977

PATIENT
  Sex: Female

DRUGS (22)
  1. SKYRIZI [Suspect]
     Active Substance: RISANKIZUMAB-RZAA
     Indication: Psoriasis
     Route: 058
     Dates: start: 20201119, end: 20201216
  2. SKYRIZI [Suspect]
     Active Substance: RISANKIZUMAB-RZAA
     Route: 058
     Dates: start: 202105
  3. PANTOPRAZOLE [Concomitant]
     Active Substance: PANTOPRAZOLE
     Indication: Gastrooesophageal reflux prophylaxis
     Dosage: 40 MILLIGRAM
     Route: 048
     Dates: start: 20220331
  4. FUROSEMIDE [Concomitant]
     Active Substance: FUROSEMIDE
     Indication: Hypertension
     Dosage: 20 MILLIGRAM
     Route: 048
     Dates: start: 202101
  5. Potassium chlorur [Concomitant]
     Indication: Hypokalaemia
     Dosage: 1.2 GRAM
     Route: 048
     Dates: start: 202101
  6. GLICLAZIDE [Concomitant]
     Active Substance: GLICLAZIDE
     Indication: Type 2 diabetes mellitus
     Dosage: 120 MILLIGRAM
     Route: 048
  7. HYDROCHLOROTHIAZIDE [Concomitant]
     Active Substance: HYDROCHLOROTHIAZIDE
     Indication: Hypertension
     Dosage: 300 MILLIGRAM
     Route: 048
  8. INSULINE GLULISINE [Concomitant]
     Indication: Diabetes mellitus
     Route: 058
     Dates: start: 20220331
  9. ENSTILAR [Concomitant]
     Active Substance: BETAMETHASONE DIPROPIONATE\CALCIPOTRIENE HYDRATE
     Indication: Erythema
     Dosage: ONCE A DAY DURING ONE MONTH THEN TWICE A WEEK
     Route: 003
     Dates: start: 20211022
  10. SEMAGLUTIDE [Concomitant]
     Active Substance: SEMAGLUTIDE
     Indication: Type 2 diabetes mellitus
     Route: 058
  11. Levothyroxine sodic [Concomitant]
     Indication: Hypothyroidism
     Dosage: 62.5 MICROGRAM
     Route: 048
  12. ATORVASTATIN [Concomitant]
     Active Substance: ATORVASTATIN
     Indication: Cardiovascular event prophylaxis
     Dosage: 20 MILLIGRAM
     Route: 048
     Dates: start: 20210113
  13. ASPIRIN [Concomitant]
     Active Substance: ASPIRIN
     Indication: Cardiovascular event prophylaxis
     Dosage: 75 MILLIGRAM
     Route: 048
     Dates: start: 20210112
  14. DULOXETINE [Concomitant]
     Active Substance: DULOXETINE
     Indication: Diabetic neuropathy
     Dosage: 12.5 MILLIGRAM
     Route: 048
     Dates: start: 20210111
  15. Uvedose 50 000 [Concomitant]
     Indication: Vitamin D deficiency
     Route: 048
     Dates: start: 20220505
  16. BISOPROLOL [Concomitant]
     Active Substance: BISOPROLOL
     Indication: Cardiac failure
     Dosage: 2.5 MILLIGRAM
     Route: 048
     Dates: start: 20210112
  17. FONDAPARINUX [Concomitant]
     Active Substance: FONDAPARINUX
     Indication: Deep vein thrombosis
     Dosage: 2.5 MILLIGRAM
     Route: 058
     Dates: start: 20210111
  18. ARGININE [Concomitant]
     Active Substance: ARGININE
     Indication: Type 2 diabetes mellitus
     Dosage: 35 IU (INTERNATIONAL UNIT)
     Route: 058
     Dates: end: 20220505
  19. TRESIBA [Concomitant]
     Active Substance: INSULIN DEGLUDEC
     Indication: Diabetes mellitus
     Dosage: 46 IU (INTERNATIONAL UNIT)
     Route: 058
     Dates: start: 20220505
  20. TRESIBA [Concomitant]
     Active Substance: INSULIN DEGLUDEC
     Indication: Diabetes mellitus
     Dosage: 46 IU (INTERNATIONAL UNIT)
     Route: 058
     Dates: start: 20220505
  21. Duloxetine chlorhydrat [Concomitant]
     Indication: Diabetic neuropathy
     Dosage: 30 MILLIGRAM
     Route: 048
  22. IRBESARTAN [Concomitant]
     Active Substance: IRBESARTAN
     Indication: Product used for unknown indication

REACTIONS (4)
  - Diabetes mellitus inadequate control [Recovering/Resolving]
  - Hyperglycaemia [Recovering/Resolving]
  - Gastrointestinal disorder [Recovering/Resolving]
  - Unevaluable event [Recovering/Resolving]

NARRATIVE: CASE EVENT DATE: 20220311
